FAERS Safety Report 17953235 (Version 2)
Quarter: 2022Q3

REPORT INFORMATION
  Report Type: Spontaneous
  Country: IT (occurrence: IT)
  Receive Date: 20200627
  Receipt Date: 20220826
  Transmission Date: 20221027
  Serious: Yes (Other)
  Sender: FDA-Public Use
  Company Number: IT-NOVARTISPH-PHHY2019IT164948

PATIENT
  Age: 71 Year
  Sex: Male

DRUGS (13)
  1. RITUXIMAB [Suspect]
     Active Substance: RITUXIMAB
     Indication: Diffuse large B-cell lymphoma
     Dosage: 1400 MG, CYCLIC (3 CYCLIC)
     Route: 058
     Dates: start: 201801
  2. RITUXIMAB [Suspect]
     Active Substance: RITUXIMAB
     Indication: Non-Hodgkin^s lymphoma
  3. METHYLPREDNISOLONE [Suspect]
     Active Substance: METHYLPREDNISOLONE
     Indication: Diffuse large B-cell lymphoma
     Dosage: 80 MG, CYCLIC (3 CYCLICAL)
     Route: 065
     Dates: start: 201801
  4. METHYLPREDNISOLONE [Suspect]
     Active Substance: METHYLPREDNISOLONE
     Indication: Non-Hodgkin^s lymphoma
  5. DOXORUBICIN HYDROCHLORIDE [Suspect]
     Active Substance: DOXORUBICIN HYDROCHLORIDE
     Indication: Non-Hodgkin^s lymphoma
     Dosage: 80 MG, CYCLIC(3 CYCLICAL)
     Route: 065
     Dates: start: 201801
  6. DOXORUBICIN HYDROCHLORIDE [Suspect]
     Active Substance: DOXORUBICIN HYDROCHLORIDE
     Indication: Diffuse large B-cell lymphoma
  7. ONCOVIN [Suspect]
     Active Substance: VINCRISTINE SULFATE
     Indication: Diffuse large B-cell lymphoma
     Dosage: 2 MG, CYCLIC (3 CYCLICAL)
     Route: 065
     Dates: start: 201801
  8. ONCOVIN [Suspect]
     Active Substance: VINCRISTINE SULFATE
     Indication: Non-Hodgkin^s lymphoma
  9. CYCLOPHOSPHAMIDE [Suspect]
     Active Substance: CYCLOPHOSPHAMIDE
     Indication: Diffuse large B-cell lymphoma
     Dosage: 1500 MG, CYCLIC (3 CYCLICAL)
     Route: 065
  10. CYCLOPHOSPHAMIDE [Suspect]
     Active Substance: CYCLOPHOSPHAMIDE
     Indication: Non-Hodgkin^s lymphoma
  11. PREDNISOLONE [Suspect]
     Active Substance: PREDNISOLONE
     Indication: Non-Hodgkin^s lymphoma
     Dosage: UNK THIRD CYCLE(ON THE FIRST DAY OF EACH CYCLE FOR 5 DAYS)
     Route: 048
  12. ASPIRIN [Concomitant]
     Active Substance: ASPIRIN
     Indication: Coronary artery disease
     Dosage: UNK
     Route: 065
  13. SIMVASTATIN [Concomitant]
     Active Substance: SIMVASTATIN
     Indication: Blood cholesterol increased
     Dosage: UNK
     Route: 065

REACTIONS (2)
  - Osteonecrosis of jaw [Recovered/Resolved]
  - Osteonecrosis [Unknown]

NARRATIVE: CASE EVENT DATE: 20180301
